FAERS Safety Report 8231175-4 (Version None)
Quarter: 2012Q1

REPORT INFORMATION
  Report Type: 
  Country: None (occurrence: None)
  Receive Date: 20120323
  Receipt Date: 20120314
  Transmission Date: 20120608
  Serious: Yes (Other)
  Sender: FDA-Public Use
  Company Number: GB-JNJFOC-20120308357

PATIENT
  Sex: Male
  Weight: 64.4 kg

DRUGS (2)
  1. STELARA [Suspect]
     Indication: PSORIASIS
     Route: 058
     Dates: start: 20101101
  2. RAMIPRIL [Concomitant]
     Route: 065
     Dates: start: 20070101

REACTIONS (1)
  - CARCINOMA IN SITU OF SKIN [None]
